FAERS Safety Report 16875056 (Version 1)
Quarter: 2019Q4

REPORT INFORMATION
  Report Type: Report from Study
  Country: DZ (occurrence: DZ)
  Receive Date: 20191001
  Receipt Date: 20191001
  Transmission Date: 20200122
  Serious: Yes (Death)
  Sender: FDA-Public Use
  Company Number: DZ-ACTELION-A-US2019-196390

PATIENT
  Sex: Female

DRUGS (1)
  1. VENTAVIS [Suspect]
     Active Substance: ILOPROST
     Indication: PULMONARY ARTERIAL HYPERTENSION
     Dosage: 2.5 UNK
     Route: 055
     Dates: start: 20190320, end: 20190731

REACTIONS (1)
  - Death [Fatal]

NARRATIVE: CASE EVENT DATE: 20190925
